FAERS Safety Report 12228684 (Version 1)
Quarter: 2016Q1

REPORT INFORMATION
  Report Type: Spontaneous
  Country: US (occurrence: None)
  Receive Date: 20160331
  Receipt Date: 20160331
  Transmission Date: 20160526
  Serious: Yes (Other)
  Sender: FDA-Public Use
  Company Number: None

PATIENT
  Age: 30 Year
  Sex: Female
  Weight: 63.5 kg

DRUGS (3)
  1. ISONIAZIDE [Suspect]
     Active Substance: ISONIAZID
  2. FOLIC ACID. [Concomitant]
     Active Substance: FOLIC ACID
  3. RIFAMPIN. [Suspect]
     Active Substance: RIFAMPIN
     Indication: TUBERCULOSIS
     Dosage: IN THE MORNING TAKEN BY MOUTH
     Route: 048
     Dates: start: 20150101, end: 20150401

REACTIONS (1)
  - Infertility female [None]

NARRATIVE: CASE EVENT DATE: 20160124
